FAERS Safety Report 9689701 (Version 2)
Quarter: 2013Q4

REPORT INFORMATION
  Report Type: Report from Study
  Country: DE (occurrence: DE)
  Receive Date: 20131115
  Receipt Date: 20131122
  Transmission Date: 20140711
  Serious: Yes (Death, Hospitalization)
  Sender: FDA-Public Use
  Company Number: DE-AMGEN-DEUCT2013080278

PATIENT
  Age: 61 Year
  Sex: Female

DRUGS (6)
  1. ETANERCEPT [Suspect]
     Indication: PRODUCT USED FOR UNKNOWN INDICATION
     Dosage: 50 MG, WEEKLY
     Route: 065
     Dates: start: 20121126, end: 201302
  2. PREDNISOLON                        /00016201/ [Concomitant]
     Dosage: UNK
  3. ASS [Concomitant]
     Dosage: UNK
  4. LAMICTAL [Concomitant]
     Dosage: UNK
  5. INSULIN [Concomitant]
     Dosage: UNK
  6. TREVILOR [Concomitant]
     Dosage: UNK

REACTIONS (1)
  - Acute respiratory distress syndrome [Fatal]
